FAERS Safety Report 21588836 (Version 2)
Quarter: 2022Q4

REPORT INFORMATION
  Report Type: Spontaneous
  Country: US (occurrence: US)
  Receive Date: 20221114
  Receipt Date: 20221121
  Transmission Date: 20230113
  Serious: No
  Sender: FDA-Public Use
  Company Number: US-ORGANON-O2211USA000507

PATIENT
  Age: 53 Year
  Sex: Female

DRUGS (1)
  1. DULERA [Suspect]
     Active Substance: FORMOTEROL FUMARATE DIHYDRATE\MOMETASONE FUROATE
     Dosage: UNK UNK, QD (1 TO 2 DOSES A DAY)
     Dates: start: 20221013

REACTIONS (6)
  - Poor quality device used [Unknown]
  - Circumstance or information capable of leading to medication error [Unknown]
  - Incorrect dose administered [Unknown]
  - Product use issue [Unknown]
  - Product delivery mechanism issue [Unknown]
  - No adverse event [Unknown]

NARRATIVE: CASE EVENT DATE: 20221013
